FAERS Safety Report 8258583-X (Version None)
Quarter: 2012Q1

REPORT INFORMATION
  Report Type: 
  Country: None (occurrence: None)
  Receive Date: 20120322
  Receipt Date: 20120125
  Transmission Date: 20120608
  Serious: Yes (Hospitalization)
  Sender: FDA-Public Use
  Company Number: UTC-014331

PATIENT
  Age: 54 Year
  Sex: Female
  Weight: 57.27 kg

DRUGS (7)
  1. TYVASO [Suspect]
     Indication: COR PULMONALE CHRONIC
     Dosage: 216 MCG (54 MCG,4 IN 1 D),INHALATION
     Route: 055
     Dates: start: 20101005
  2. PACERONE [Concomitant]
  3. CELLECEPT (MYOCOPHENOLATE MOFETIL) [Concomitant]
  4. LETAIRIS [Concomitant]
  5. COUMADIN [Concomitant]
  6. ADCIRCA [Concomitant]
  7. DIURETICS (DIURETICS) [Concomitant]

REACTIONS (1)
  - CERVICAL SPINAL STENOSIS [None]
